FAERS Safety Report 20808451 (Version 1)
Quarter: 2022Q2

REPORT INFORMATION
  Report Type: Spontaneous
  Country: US (occurrence: US)
  Receive Date: 20220510
  Receipt Date: 20220510
  Transmission Date: 20220721
  Serious: Yes (Life-Threatening, Hospitalization)
  Sender: FDA-Public Use
  Company Number: US-MACLEODS PHARMACEUTICALS US LTD-MAC2022035493

PATIENT

DRUGS (7)
  1. LIDOCAINE [Suspect]
     Active Substance: LIDOCAINE
     Indication: Ventricular tachycardia
     Dosage: UNK, 1 MILLIGRAM (INFUSION, DRIP WAS CONTINUED AT 1 MG/MIN)
     Route: 041
  2. LIDOCAINE [Suspect]
     Active Substance: LIDOCAINE
     Dosage: 0.5 MILLIGRAM, 0.5 MILLIGRAM (INFUSION, WEANED ON HOSPITAL DAY TWO TO 0.5 MG/MIN)
     Route: 041
  3. AMIODARONE [Concomitant]
     Active Substance: AMIODARONE
     Indication: Ventricular tachycardia
     Dosage: UNK (BOLUS)
     Route: 041
  4. AMIODARONE [Concomitant]
     Active Substance: AMIODARONE
     Indication: Ventricular fibrillation
  5. MEXILETINE [Concomitant]
     Active Substance: MEXILETINE
     Indication: Product used for unknown indication
     Dosage: 200  MILLIGRAM, TID (EVERY EIGHT HOURS)
     Route: 048
  6. MEXILETINE [Concomitant]
     Active Substance: MEXILETINE
     Dosage: 200  MILLIGRAM, TID (EVERY EIGHT HOURS, ON HOSPITAL DAY TWO)
     Route: 048
  7. METHIMAZOLE [Concomitant]
     Active Substance: METHIMAZOLE
     Indication: Hyperthyroidism
     Dosage: UNK
     Route: 065

REACTIONS (4)
  - Neurotoxicity [Unknown]
  - Toxicity to various agents [Unknown]
  - Mental status changes [Unknown]
  - Seizure [Recovered/Resolved]
